FAERS Safety Report 6142570-1 (Version None)
Quarter: 2009Q2

REPORT INFORMATION
  Report Type: 
  Country: None (occurrence: None)
  Receive Date: 20090403
  Receipt Date: 20070718
  Transmission Date: 20091009
  Serious: Yes (Death, Other)
  Sender: FDA-Public Use
  Company Number: US-ASTRAZENECA-2006UW19003

PATIENT
  Age: 5122 Day
  Sex: Male

DRUGS (28)
  1. SEROQUEL [Suspect]
     Indication: TOURETTE'S DISORDER
     Route: 048
     Dates: start: 19981112, end: 20000520
  2. SEROQUEL [Suspect]
     Indication: OBSESSIVE-COMPULSIVE DISORDER
     Route: 048
     Dates: start: 19981112, end: 20000520
  3. SEROQUEL [Suspect]
     Route: 048
     Dates: start: 20000520, end: 20010117
  4. SEROQUEL [Suspect]
     Route: 048
     Dates: start: 20000520, end: 20010117
  5. SEROQUEL [Suspect]
     Route: 048
     Dates: start: 20021211
  6. SEROQUEL [Suspect]
     Route: 048
     Dates: start: 20021211
  7. SEROQUEL [Suspect]
     Route: 048
     Dates: start: 20000821, end: 20030226
  8. SEROQUEL [Suspect]
     Route: 048
     Dates: start: 20000821, end: 20030226
  9. SEROQUEL [Suspect]
     Dosage: 25-500 MG
     Route: 048
     Dates: start: 19981112
  10. SEROQUEL [Suspect]
     Dosage: 25-500 MG
     Route: 048
     Dates: start: 19981112
  11. RISPERDAL [Suspect]
     Dates: start: 20000504, end: 20030226
  12. TEGRETOL [Concomitant]
  13. LUVOX [Concomitant]
  14. TRILEPTAL [Concomitant]
  15. TENEX [Concomitant]
  16. RITALIN [Concomitant]
  17. MINOCYCLINE HCL [Concomitant]
  18. DEPAKOTE [Concomitant]
     Dosage: 250 MG AM, 325 MG HS
     Dates: start: 19980420
  19. CATAPRES [Concomitant]
  20. ZOLOFT [Concomitant]
  21. XANAX [Concomitant]
  22. GENTAMICIN [Concomitant]
  23. FLAGYL [Concomitant]
  24. CEFTAZIDIME [Concomitant]
  25. CEFEPIME [Concomitant]
  26. TETRACYCLINE [Concomitant]
  27. AMITRIPTYLINE HCL [Concomitant]
  28. HALDOL [Concomitant]

REACTIONS (15)
  - ACNE CYSTIC [None]
  - ASTIGMATISM [None]
  - BRADYCARDIA [None]
  - CONDUCTIVE DEAFNESS [None]
  - DRY MOUTH [None]
  - HYPOTENSION [None]
  - MENTAL DISORDER [None]
  - PANCREATITIS ACUTE [None]
  - RASH [None]
  - RASH ERYTHEMATOUS [None]
  - RASH PRURITIC [None]
  - RENAL FAILURE ACUTE [None]
  - RESPIRATORY FAILURE [None]
  - SEBORRHOEIC DERMATITIS [None]
  - WEIGHT DECREASED [None]
